FAERS Safety Report 7761908-2 (Version None)
Quarter: 2011Q3

REPORT INFORMATION
  Report Type: 
  Country: None (occurrence: None)
  Receive Date: 20110920
  Receipt Date: 20110908
  Transmission Date: 20111222
  Serious: Yes (Hospitalization, Other)
  Sender: FDA-Public Use
  Company Number: FR-ELI_LILLY_AND_COMPANY-FR201109000051

PATIENT
  Age: 70 Year
  Sex: Male
  Weight: 85 kg

DRUGS (8)
  1. CIMETIDINE [Concomitant]
     Indication: GASTRIC ULCER
     Dosage: UNK
     Dates: start: 20110321
  2. NITROGLYCERIN [Concomitant]
     Dosage: UNK UNK, UNKNOWN
     Route: 065
     Dates: start: 20110321
  3. ASPIRIN [Concomitant]
     Dosage: UNK, UNKNOWN
     Route: 065
     Dates: start: 20110317
  4. METOPROLOL TARTRATE [Concomitant]
     Indication: HYPERTENSION
     Dosage: UNK, UNKNOWN
     Route: 065
     Dates: start: 20110317
  5. ASPIRIN [Concomitant]
     Dosage: UNK, UNKNOWN
     Route: 065
  6. EFFIENT [Suspect]
     Indication: ACUTE MYOCARDIAL INFARCTION
     Dosage: 10 MG, UNK
     Route: 048
     Dates: start: 20110318
  7. ATORVASTATIN [Concomitant]
     Indication: DYSLIPIDAEMIA
     Dosage: UNK, UNKNOWN
     Route: 065
     Dates: start: 20110316
  8. METFORMIN AND SITAGLIPTIN [Concomitant]
     Indication: DIABETES MELLITUS
     Dosage: UNK
     Dates: start: 20110321

REACTIONS (1)
  - COLON CANCER METASTATIC [None]
